FAERS Safety Report 11376729 (Version 1)
Quarter: 2015Q3

REPORT INFORMATION
  Report Type: Report from Study
  Country: US (occurrence: US)
  Receive Date: 20150813
  Receipt Date: 20150813
  Transmission Date: 20151125
  Serious: Yes (Death)
  Sender: FDA-Public Use
  Company Number: US-ASTELLAS-2015US019604

PATIENT
  Age: 84 Year
  Sex: Male

DRUGS (2)
  1. ERLOTINIB [Suspect]
     Active Substance: ERLOTINIB
     Indication: MALIGNANT RESPIRATORY TRACT NEOPLASM
     Route: 048
     Dates: start: 200806
  2. ERLOTINIB [Suspect]
     Active Substance: ERLOTINIB
     Indication: THROMBOCYTOPENIA
     Dosage: 150 MG, OTHER, 1 IN 2 DAYS
     Route: 048
     Dates: start: 20080616

REACTIONS (4)
  - Death [Fatal]
  - Rash [Unknown]
  - Dyspnoea [Unknown]
  - Diarrhoea [Unknown]

NARRATIVE: CASE EVENT DATE: 20081204
